FAERS Safety Report 6743632-8 (Version None)
Quarter: 2010Q2

REPORT INFORMATION
  Report Type: 
  Country: None (occurrence: None)
  Receive Date: 20100527
  Receipt Date: 20100519
  Transmission Date: 20101027
  Serious: Yes (Life-Threatening)
  Sender: FDA-Public Use
  Company Number: JP-ROCHE-705278

PATIENT
  Sex: Male

DRUGS (7)
  1. TOCILIZUMAB [Suspect]
     Indication: JUVENILE ARTHRITIS
     Route: 041
     Dates: start: 20090925, end: 20090925
  2. TOCILIZUMAB [Suspect]
     Route: 041
     Dates: start: 20091016, end: 20091113
  3. TOCILIZUMAB [Suspect]
     Dosage: DISCONTINUED
     Route: 041
     Dates: start: 20091204, end: 20091204
  4. PREDNISOLONE [Concomitant]
     Dosage: DOSE FORM: PERORAL AGENT
     Route: 048
  5. NAPROXEN [Concomitant]
     Dosage: DOSE FORM: PERORAL AGENT
     Route: 048
  6. FAMOTIDINE [Concomitant]
     Route: 048
  7. FERRIC PYROPHOSPHATE [Concomitant]
     Dosage: DRUG: INCREMIN(FERRIC PYROPHOSPHATE,SOLUBLE)
     Route: 048

REACTIONS (3)
  - CEREBRAL HAEMORRHAGE [None]
  - INFUSION RELATED REACTION [None]
  - WHITE BLOOD CELL COUNT INCREASED [None]
